FAERS Safety Report 12722034 (Version 1)
Quarter: 2016Q3

REPORT INFORMATION
  Report Type: Report from Study
  Country: BR (occurrence: BR)
  Receive Date: 20160907
  Receipt Date: 20160907
  Transmission Date: 20161109
  Serious: Yes (Other)
  Sender: FDA-Public Use
  Company Number: PHHY2016BR121654

PATIENT
  Sex: Female
  Weight: 62 kg

DRUGS (1)
  1. FORASEQ [Suspect]
     Active Substance: BUDESONIDE\FORMOTEROL FUMARATE
     Indication: BRONCHITIS
     Dosage: 2 DF (400 MCG), BID
     Route: 055

REACTIONS (2)
  - Visual impairment [Unknown]
  - Glaucoma [Unknown]
